FAERS Safety Report 9589754 (Version 1)
Quarter: 2013Q4

REPORT INFORMATION
  Report Type: Spontaneous
  Country: US (occurrence: US)
  Receive Date: 20131003
  Receipt Date: 20131003
  Transmission Date: 20140711
  Serious: No
  Sender: FDA-Public Use
  Company Number: US-AMGEN-USASP2012071496

PATIENT
  Age: 65 Year
  Sex: Female

DRUGS (2)
  1. ENBREL [Suspect]
     Indication: RHEUMATOID ARTHRITIS
     Dosage: 50 MG, QWK
     Dates: start: 20100601
  2. METHOTREXATE [Concomitant]
     Dosage: 2.5 MG, 4 TABS
     Dates: start: 201210

REACTIONS (2)
  - Hepatic enzyme increased [Recovered/Resolved]
  - Skin plaque [Recovered/Resolved]
